FAERS Safety Report 19012447 (Version 1)
Quarter: 2021Q1

REPORT INFORMATION
  Report Type: Spontaneous
  Country: US (occurrence: US)
  Receive Date: 20210316
  Receipt Date: 20210316
  Transmission Date: 20210420
  Serious: No
  Sender: FDA-Public Use
  Company Number: None

PATIENT
  Age: 34 Year
  Sex: Male
  Weight: 72.1 kg

DRUGS (1)
  1. BUPRENORPHINE AND NALOXONE [Suspect]
     Active Substance: BUPRENORPHINE HYDROCHLORIDE\NALOXONE HYDROCHLORIDE
     Route: 060
     Dates: start: 20190911, end: 20210315

REACTIONS (2)
  - Therapeutic product effect incomplete [None]
  - Product solubility abnormal [None]

NARRATIVE: CASE EVENT DATE: 20210309
